FAERS Safety Report 16223735 (Version 1)
Quarter: 2019Q2

REPORT INFORMATION
  Report Type: Spontaneous
  Country: US (occurrence: US)
  Receive Date: 20190422
  Receipt Date: 20190422
  Transmission Date: 20190711
  Serious: Yes (Hospitalization, Other)
  Sender: FDA-Public Use
  Company Number: US-FERRINGPH-2019FE01304

PATIENT
  Age: 77 Year
  Sex: Male
  Weight: 104.31 kg

DRUGS (4)
  1. FIRMAGON [Suspect]
     Active Substance: DEGARELIX ACETATE
     Indication: PRODUCT USED FOR UNKNOWN INDICATION
     Dosage: 80 MG, MONTHLY
     Route: 058
  2. ATENOLOL. [Concomitant]
     Active Substance: ATENOLOL
     Dosage: 50 MG, DAILY
     Route: 048
  3. ELIQUIS [Concomitant]
     Active Substance: APIXABAN
     Dosage: 5 MG, 2 TIMES DAILY
     Route: 048
  4. HYDROCHLOROTHIAZIDE. [Concomitant]
     Active Substance: HYDROCHLOROTHIAZIDE
     Dosage: 25 MG, DAILY
     Route: 048

REACTIONS (15)
  - Cholelithiasis [Unknown]
  - Leukocytosis [Recovered/Resolved]
  - Lymphadenopathy [Unknown]
  - Hyponatraemia [Recovered/Resolved]
  - Pyrexia [Unknown]
  - Hepatic steatosis [Unknown]
  - Splenomegaly [Unknown]
  - Diabetes mellitus [Not Recovered/Not Resolved]
  - Renal cyst [Unknown]
  - Fatigue [Unknown]
  - Injection site swelling [Unknown]
  - Transaminases increased [Unknown]
  - Hepatic enzyme increased [Unknown]
  - Atelectasis [Unknown]
  - Gynaecomastia [Unknown]

NARRATIVE: CASE EVENT DATE: 201805
